FAERS Safety Report 7722848-8 (Version None)
Quarter: 2011Q3

REPORT INFORMATION
  Report Type: 
  Country: None (occurrence: None)
  Receive Date: 20110901
  Receipt Date: 20110823
  Transmission Date: 20111222
  Serious: No
  Sender: FDA-Public Use
  Company Number: US-BIOGENIDEC-2011BI032552

PATIENT
  Age: 56 Year
  Sex: Female

DRUGS (3)
  1. TYSABRI [Suspect]
     Indication: MULTIPLE SCLEROSIS
     Route: 042
     Dates: start: 20110601
  2. TYSABRI [Suspect]
     Route: 042
     Dates: start: 20080801, end: 20100301
  3. XANAX [Concomitant]
     Indication: STRESS

REACTIONS (5)
  - ANTIBIOTIC RESISTANT STAPHYLOCOCCUS TEST POSITIVE [None]
  - ESCHERICHIA TEST POSITIVE [None]
  - SLUGGISHNESS [None]
  - URINARY TRACT INFECTION [None]
  - CYSTITIS [None]
